FAERS Safety Report 18993300 (Version 2)
Quarter: 2021Q4

REPORT INFORMATION
  Report Type: Spontaneous
  Country: NO (occurrence: NO)
  Receive Date: 20210310
  Receipt Date: 20211111
  Transmission Date: 20220303
  Serious: Yes (Congenital Anomaly)
  Sender: FDA-Public Use
  Company Number: NO-SA-2021SA041333

PATIENT
  Sex: Female
  Weight: 2.99 kg

DRUGS (5)
  1. PRIMIDONE [Suspect]
     Active Substance: PRIMIDONE
     Indication: Product used for unknown indication
     Route: 064
  2. VITAMIN K [Suspect]
     Active Substance: PHYTONADIONE
     Indication: Product used for unknown indication
     Route: 064
  3. PHENOBARBITAL [Suspect]
     Active Substance: PHENOBARBITAL
     Indication: Product used for unknown indication
     Route: 064
  4. ETHOSUXIMIDE [Suspect]
     Active Substance: ETHOSUXIMIDE
     Indication: Product used for unknown indication
     Route: 064
  5. ETHOSUXIMIDE [Suspect]
     Active Substance: ETHOSUXIMIDE
     Dosage: DECREASING AMOUNTS UNTIL SIX AND HALF MONTHS GESTATION
     Route: 064

REACTIONS (14)
  - Growth retardation [Unknown]
  - Postnatal growth restriction [Unknown]
  - Bone development abnormal [Unknown]
  - Low set ears [Unknown]
  - Congenital oral malformation [Unknown]
  - Prognathism [Unknown]
  - Congenital nose malformation [Unknown]
  - Dysmorphism [Unknown]
  - Prominent epicanthal folds [Unknown]
  - Hypertelorism [Unknown]
  - Poor feeding infant [Unknown]
  - Agitation neonatal [Unknown]
  - Irritability [Unknown]
  - Maternal exposure during pregnancy [Unknown]

NARRATIVE: CASE EVENT DATE: 19690101
